FAERS Safety Report 6038666-5 (Version None)
Quarter: 2009Q1

REPORT INFORMATION
  Report Type: 
  Country: None (occurrence: None)
  Receive Date: 20090115
  Receipt Date: 20080908
  Transmission Date: 20090719
  Serious: No
  Sender: FDA-Public Use
  Company Number: US-BAYER-200813675BCC

PATIENT
  Age: 68 Year
  Sex: Male
  Weight: 75 kg

DRUGS (1)
  1. ALEVE [Suspect]
     Indication: MUSCULOSKELETAL STIFFNESS
     Dosage: TOTAL DAILY DOSE: 440 MG  UNIT DOSE: 220 MG
     Route: 048
     Dates: start: 20080908

REACTIONS (6)
  - ERYTHEMA [None]
  - HEART RATE INCREASED [None]
  - HYPERSENSITIVITY [None]
  - PRURITUS [None]
  - SWELLING [None]
  - URTICARIA [None]
